FAERS Safety Report 16327018 (Version 2)
Quarter: 2019Q2

REPORT INFORMATION
  Report Type: Report from Study
  Country: JP (occurrence: JP)
  Receive Date: 20190517
  Receipt Date: 20190605
  Transmission Date: 20190711
  Serious: Yes (Other)
  Sender: FDA-Public Use
  Company Number: JP-ASTRAZENECA-2019SE74251

PATIENT
  Age: 75 Year
  Sex: Male

DRUGS (5)
  1. STAYBLA [Concomitant]
     Active Substance: IMIDAFENACIN
  2. SAXAGLIPTIN [Suspect]
     Active Substance: SAXAGLIPTIN
     Indication: TYPE 2 DIABETES MELLITUS
     Route: 048
     Dates: start: 20150313, end: 20170706
  3. STARSIS [Concomitant]
     Active Substance: NATEGLINIDE
  4. URIEF [Concomitant]
     Active Substance: SILODOSIN
     Route: 048
  5. BASEN [Concomitant]
     Active Substance: VOGLIBOSE
     Dates: start: 20150807

REACTIONS (1)
  - Diabetes mellitus inadequate control [Not Recovered/Not Resolved]

NARRATIVE: CASE EVENT DATE: 20170605
